FAERS Safety Report 8784794 (Version 2)
Quarter: 2012Q4

REPORT INFORMATION
  Report Type: Report from Study
  Country: US (occurrence: US)
  Receive Date: 20120914
  Receipt Date: 20121001
  Transmission Date: 20130627
  Serious: Yes (Other)
  Sender: FDA-Public Use
  Company Number: US-BRISTOL-MYERS SQUIBB COMPANY-16936486

PATIENT
  Age: 75 Year
  Sex: Male
  Weight: 103 kg

DRUGS (8)
  1. CISPLATIN [Suspect]
     Indication: BLADDER TRANSITIONAL CELL CARCINOMA
     Route: 042
     Dates: start: 20110112
  2. GEMCITABINE HCL [Suspect]
     Indication: TRANSITIONAL CELL CARCINOMA
     Dosage: On day 1,day 8 and day 15 of each cycle;Vial. last dose on 23Feb2011
     Route: 065
     Dates: start: 20110112
  3. COUMADIN [Suspect]
  4. LOPRESSOR [Concomitant]
  5. DIGOXIN [Concomitant]
  6. LASIX [Concomitant]
  7. POTASSIUM [Concomitant]
  8. ZOCOR [Concomitant]

REACTIONS (1)
  - Pulmonary embolism [Recovering/Resolving]
